FAERS Safety Report 5753788-1 (Version None)
Quarter: 2008Q2

REPORT INFORMATION
  Report Type: 
  Country: None (occurrence: None)
  Receive Date: 20080530
  Receipt Date: 20080522
  Transmission Date: 20081010
  Serious: Yes (Hospitalization, Other)
  Sender: FDA-Public Use
  Company Number: US-ABBOTT-08P-163-0453179-00

PATIENT
  Sex: Male
  Weight: 135.75 kg

DRUGS (7)
  1. DEPAKOTE [Suspect]
     Indication: DRUG USE FOR UNKNOWN INDICATION
     Route: 048
  2. DEPAKOTE [Suspect]
     Route: 048
     Dates: start: 20080521
  3. LORAZEPAM [Concomitant]
     Indication: DRUG USE FOR UNKNOWN INDICATION
  4. CARBAMAZEPINE [Concomitant]
     Indication: CONVULSION
     Dates: end: 20080502
  5. ZONISAMIDE [Concomitant]
     Indication: CONVULSION
  6. PROCHLORPERAZINE [Concomitant]
     Indication: HICCUPS
  7. ARIPIPRAZOLE [Concomitant]
     Indication: DRUG USE FOR UNKNOWN INDICATION

REACTIONS (4)
  - AGGRESSION [None]
  - CONVULSION [None]
  - HYPERAMMONAEMIA [None]
  - POSTICTAL STATE [None]
